FAERS Safety Report 11832395 (Version 2)
Quarter: 2015Q4

REPORT INFORMATION
  Report Type: Report from Study
  Country: US (occurrence: US)
  Receive Date: 20151214
  Receipt Date: 20151215
  Transmission Date: 20160305
  Serious: No
  Sender: FDA-Public Use
  Company Number: US-ABBVIE-15P-163-1507606-00

PATIENT
  Sex: Female

DRUGS (4)
  1. LUPANETA PACK [Suspect]
     Active Substance: ISOPROPYL ALCOHOL\LEUPROLIDE ACETATE\NORETHINDRONE ACETATE
     Indication: UTERINE LEIOMYOMA
     Route: 030
     Dates: start: 20150527
  2. LUPANETA PACK [Suspect]
     Active Substance: ISOPROPYL ALCOHOL\LEUPROLIDE ACETATE\NORETHINDRONE ACETATE
     Indication: UTERINE LEIOMYOMA
     Route: 048
  3. IRON [Concomitant]
     Active Substance: IRON
     Indication: PRODUCT USED FOR UNKNOWN INDICATION
  4. ORTHO-TRI-CYCLEN 21 [Concomitant]
     Indication: PRODUCT USED FOR UNKNOWN INDICATION

REACTIONS (6)
  - Menorrhagia [Not Recovered/Not Resolved]
  - Back pain [Not Recovered/Not Resolved]
  - Polymenorrhoea [Not Recovered/Not Resolved]
  - Uterine leiomyoma [Not Recovered/Not Resolved]
  - Drug ineffective [Not Recovered/Not Resolved]
  - Pelvic pain [Not Recovered/Not Resolved]

NARRATIVE: CASE EVENT DATE: 2015
